FAERS Safety Report 14698724 (Version 1)
Quarter: 2018Q1

REPORT INFORMATION
  Report Type: Spontaneous
  Country: US (occurrence: US)
  Receive Date: 20180330
  Receipt Date: 20180330
  Transmission Date: 20180509
  Serious: No
  Sender: FDA-Public Use
  Company Number: US-PFIZER INC-2018127801

PATIENT
  Age: 80 Year
  Sex: Female

DRUGS (2)
  1. CELEBREX [Suspect]
     Active Substance: CELECOXIB
     Indication: KYPHOSIS
  2. CELEBREX [Suspect]
     Active Substance: CELECOXIB
     Indication: HIP FRACTURE
     Dosage: UNK

REACTIONS (2)
  - Product use in unapproved indication [Unknown]
  - Single functional kidney [Unknown]
